FAERS Safety Report 9479113 (Version 1)
Quarter: 2013Q3

REPORT INFORMATION
  Report Type: Spontaneous
  Country: FR (occurrence: FR)
  Receive Date: 20130827
  Receipt Date: 20130827
  Transmission Date: 20140515
  Serious: Yes (Hospitalization)
  Sender: FDA-Public Use
  Company Number: FR-GLAXOSMITHKLINE-B0917342A

PATIENT
  Age: 88 Year
  Sex: Female

DRUGS (9)
  1. DEROXAT [Suspect]
     Indication: PRODUCT USED FOR UNKNOWN INDICATION
     Dosage: 20MG PER DAY
     Route: 048
     Dates: start: 20130707, end: 20130710
  2. XARELTO [Concomitant]
  3. FUROSEMIDE [Concomitant]
  4. OMEPRAZOLE [Concomitant]
  5. ISOXAN [Concomitant]
  6. DAFALGAN [Concomitant]
  7. SOTALOL [Concomitant]
  8. STILNOX [Concomitant]
  9. CARBOCISTEINE [Concomitant]

REACTIONS (14)
  - Inappropriate antidiuretic hormone secretion [Recovered/Resolved]
  - Malaise [Recovered/Resolved]
  - Fall [Recovered/Resolved]
  - Incoherent [Recovered/Resolved]
  - Headache [Recovered/Resolved]
  - Balance disorder [Recovered/Resolved]
  - Dyspnoea [Recovered/Resolved]
  - Hyponatraemia [Recovered/Resolved]
  - Vomiting [Recovered/Resolved]
  - Paraesthesia [Recovered/Resolved]
  - Abdominal pain upper [Recovered/Resolved]
  - Microcytic anaemia [Recovered/Resolved]
  - Abasia [Recovered/Resolved]
  - Pyrexia [Recovered/Resolved]
